FAERS Safety Report 7741978-8 (Version None)
Quarter: 2011Q3

REPORT INFORMATION
  Report Type: 
  Country: None (occurrence: None)
  Receive Date: 20110912
  Receipt Date: 20110905
  Transmission Date: 20111222
  Serious: Yes (Death)
  Sender: FDA-Public Use
  Company Number: DE-JNJFOC-20110901215

PATIENT
  Age: 85 Year
  Sex: Male

DRUGS (11)
  1. DIAZEPAM [Suspect]
     Indication: PRODUCT USED FOR UNKNOWN INDICATION
     Route: 048
     Dates: start: 20081127
  2. PREDNISOLONE [Concomitant]
     Route: 048
     Dates: end: 20081129
  3. DICLOFENAC SODIUM [Concomitant]
     Route: 048
     Dates: start: 20081127, end: 20081129
  4. MELNEURIN [Suspect]
     Route: 048
     Dates: start: 20081127, end: 20081127
  5. MELNEURIN [Suspect]
     Route: 048
     Dates: start: 20081128, end: 20081128
  6. MELNEURIN [Suspect]
     Indication: PRODUCT USED FOR UNKNOWN INDICATION
     Route: 048
     Dates: start: 20081129
  7. MELNEURIN [Suspect]
     Route: 048
     Dates: start: 20081126, end: 20081126
  8. PANTOPRAZOLE [Concomitant]
     Route: 048
     Dates: start: 20081126, end: 20081129
  9. HALDOL [Suspect]
     Indication: PRODUCT USED FOR UNKNOWN INDICATION
     Route: 048
     Dates: start: 20081128
  10. LORAZEPAM [Suspect]
     Indication: PRODUCT USED FOR UNKNOWN INDICATION
     Route: 048
     Dates: start: 20081128
  11. ASPIRIN [Concomitant]
     Route: 048

REACTIONS (2)
  - CARDIAC FAILURE [None]
  - PNEUMONIA [None]
